FAERS Safety Report 6465155-6 (Version None)
Quarter: 2009Q4

REPORT INFORMATION
  Report Type: 
  Country: None (occurrence: None)
  Receive Date: 20091124
  Receipt Date: 20091116
  Transmission Date: 20100525
  Serious: Yes (Other)
  Sender: FDA-Public Use
  Company Number: ADR51172009

PATIENT
  Age: 81 Year
  Sex: Male

DRUGS (6)
  1. AMLODIPINE [Suspect]
  2. RAMIPRIL [Suspect]
  3. ALFACALCIDOL [Concomitant]
  4. NITROFURANTOIN [Concomitant]
  5. MACROCRYSTALS [Concomitant]
  6. PARACETAMOL [Concomitant]

REACTIONS (3)
  - CATARACT [None]
  - INTRACRANIAL PRESSURE INCREASED [None]
  - PAPILLOEDEMA [None]
